FAERS Safety Report 11169478 (Version 2)
Quarter: 2015Q3

REPORT INFORMATION
  Report Type: Spontaneous
  Country: US (occurrence: US)
  Receive Date: 20150605
  Receipt Date: 20150731
  Transmission Date: 20151125
  Serious: Yes (Disabling, Other)
  Sender: FDA-Public Use
  Company Number: US-ASTRAZENECA-2015SE53708

PATIENT
  Age: 76 Year
  Sex: Female
  Weight: 65.8 kg

DRUGS (12)
  1. VITAMIN B12 [Concomitant]
     Active Substance: CYANOCOBALAMIN
     Route: 060
  2. POTASSIUM [Concomitant]
     Active Substance: POTASSIUM
     Route: 048
  3. NYNYC [Concomitant]
     Indication: RASH
     Dosage: 1000 UNKNOWN THREE TIMES A DAY
     Route: 061
  4. NEXIUM [Suspect]
     Active Substance: ESOMEPRAZOLE MAGNESIUM
     Indication: GASTROOESOPHAGEAL REFLUX DISEASE
     Route: 048
     Dates: start: 2009
  5. ALPRAZOLAM. [Concomitant]
     Active Substance: ALPRAZOLAM
     Indication: PANIC ATTACK
     Route: 048
  6. COLACE [Concomitant]
     Active Substance: DOCUSATE SODIUM
     Indication: CONSTIPATION
     Route: 048
  7. CLOPIDOGREL [Concomitant]
     Active Substance: CLOPIDOGREL BISULFATE
     Indication: PERIPHERAL VASCULAR DISORDER
     Route: 048
  8. ULTRACET [Concomitant]
     Active Substance: ACETAMINOPHEN\TRAMADOL HYDROCHLORIDE
     Indication: PAIN
     Dosage: 37/375MG THREE TIMES A DAY
     Route: 048
  9. DILTIAZEM [Concomitant]
     Active Substance: DILTIAZEM
     Indication: HYPERTENSION
     Route: 048
  10. FUROSEMIDE. [Concomitant]
     Active Substance: FUROSEMIDE
     Route: 048
  11. PROAIR HFA [Concomitant]
     Active Substance: ALBUTEROL SULFATE
     Indication: ASTHMA
     Dosage: 90 MG, 2 PUFFS 4 TIMES A DAY AS NEEDED
     Route: 065
  12. DILTIAZEM [Concomitant]
     Active Substance: DILTIAZEM
     Indication: HYPERTENSION
     Route: 048

REACTIONS (35)
  - Sleep disorder due to a general medical condition [Unknown]
  - Groin pain [Unknown]
  - Pain in extremity [Unknown]
  - Sciatica [Unknown]
  - Abdominal pain upper [Unknown]
  - Peripheral vascular disorder [Unknown]
  - Asthma [Unknown]
  - Fibromyalgia [Unknown]
  - Constipation [Unknown]
  - Gait disturbance [Unknown]
  - Limb asymmetry [Unknown]
  - Blood pressure increased [Unknown]
  - Musculoskeletal pain [Unknown]
  - Gastritis [Unknown]
  - Skin mass [Unknown]
  - Hypertension [Unknown]
  - Blood magnesium decreased [Unknown]
  - Scoliosis [Unknown]
  - Weight increased [Unknown]
  - Regurgitation [Unknown]
  - Rash [Unknown]
  - Drug ineffective [Unknown]
  - Renal impairment [Unknown]
  - Rotator cuff syndrome [Unknown]
  - Musculoskeletal discomfort [Unknown]
  - Pelvic discomfort [Unknown]
  - Winged scapula [Unknown]
  - Hypokinesia [Unknown]
  - Diarrhoea [Unknown]
  - Vomiting [Unknown]
  - Posture abnormal [Not Recovered/Not Resolved]
  - Chronic kidney disease [Unknown]
  - Dyspepsia [Unknown]
  - Pain [Unknown]
  - Body height decreased [Unknown]

NARRATIVE: CASE EVENT DATE: 2010
